FAERS Safety Report 4791835-4 (Version None)
Quarter: 2005Q4

REPORT INFORMATION
  Report Type: 
  Country: None (occurrence: None)
  Receive Date: 20051005
  Receipt Date: 20050921
  Transmission Date: 20060501
  Serious: Yes (Hospitalization)
  Sender: FDA-Public Use
  Company Number: MK200509-0252-1

PATIENT
  Age: 42 Year
  Sex: Male

DRUGS (4)
  1. ACETAMINOPHEN W/ CODEINE TAB [Suspect]
     Indication: RESPIRATORY TRACT INFECTION
     Dosage: 500/30 MG, PO
     Route: 048
  2. AMOXICILLIN PLUS CLAVULANIC ACID PILL [Concomitant]
  3. METAMIZOL [Concomitant]
  4. PANTOPRAZOL [Concomitant]

REACTIONS (9)
  - ADVERSE DRUG REACTION [None]
  - ALANINE AMINOTRANSFERASE INCREASED [None]
  - ANGIONEUROTIC OEDEMA [None]
  - ASPARTATE AMINOTRANSFERASE INCREASED [None]
  - BLOOD BILIRUBIN INCREASED [None]
  - GAMMA-GLUTAMYLTRANSFERASE INCREASED [None]
  - PANCREATITIS [None]
  - PRURITUS [None]
  - RASH MACULO-PAPULAR [None]
